FAERS Safety Report 18762789 (Version 2)
Quarter: 2021Q1

REPORT INFORMATION
  Report Type: Spontaneous
  Country: JP (occurrence: JP)
  Receive Date: 20210120
  Receipt Date: 20210322
  Transmission Date: 20210419
  Serious: Yes (Other)
  Sender: FDA-Public Use
  Company Number: JP-TAKEDA-2021TJP001060

PATIENT
  Age: 78 Year
  Sex: Male
  Weight: 60 kg

DRUGS (18)
  1. CALONAL [Suspect]
     Active Substance: ACETAMINOPHEN
     Dosage: UNK
     Route: 048
     Dates: start: 20201210, end: 20201210
  2. DAIKENCHUTO [Concomitant]
     Active Substance: HERBALS
     Dosage: 1 DOSAGE FORM, TID BETWEEN EVERY MEAL
     Route: 050
     Dates: start: 20201217
  3. SEISHOKU [Concomitant]
     Active Substance: SODIUM CHLORIDE
     Dosage: 1 DOSAGE FORM ONCE TO FOURTH A DAY
     Route: 050
     Dates: start: 20201208, end: 20201212
  4. TAKELDA COMBINATION TABLETS [Suspect]
     Active Substance: ASPIRIN\LANSOPRAZOLE
     Indication: ANGINA PECTORIS
     Dosage: 1 DOSAGE FORM = 100MG ASPIRIN + 15MG LANSOPRAZOLE, QD
     Route: 048
     Dates: end: 20201211
  5. CALONAL [Suspect]
     Active Substance: ACETAMINOPHEN
     Indication: PYREXIA
     Dosage: UNK
     Route: 048
     Dates: start: 20201208, end: 20201208
  6. CALONAL [Suspect]
     Active Substance: ACETAMINOPHEN
     Dosage: UNK
     Route: 048
     Dates: start: 20201209, end: 20201209
  7. CALONAL [Suspect]
     Active Substance: ACETAMINOPHEN
     Dosage: UNK
     Route: 048
     Dates: start: 20201211, end: 20201211
  8. KETOPROFEN. [Concomitant]
     Active Substance: KETOPROFEN
     Dosage: 40 MILLIGRAM, QD
     Route: 050
     Dates: start: 20201209
  9. ISOTONIC SODIUM CHLORIDE SOLUTION [Concomitant]
     Active Substance: SODIUM CHLORIDE
     Dosage: 100 MILLILITER, TID
     Route: 050
     Dates: start: 20201209, end: 20201217
  10. HERBESSER [Concomitant]
     Active Substance: DILTIAZEM HYDROCHLORIDE
     Dosage: 100 MILLIGRAM, QD AFTER BREAKFAST
     Route: 048
     Dates: end: 20201210
  11. MAGMITT [Concomitant]
     Active Substance: MAGNESIUM OXIDE
     Dosage: 330 MILLIGRAM, TID AFTER EVERY MEAL
     Route: 048
     Dates: end: 20201210
  12. MAGMITT [Concomitant]
     Active Substance: MAGNESIUM OXIDE
     Dosage: 330 MILLIGRAM, TID AFTER EVERY MEAL
     Route: 050
     Dates: start: 20201217
  13. DILTIAZEM HYDROCHLORIDE R [Concomitant]
     Active Substance: DILTIAZEM HYDROCHLORIDE
     Dosage: 100 MILLIGRAM, QD AFTER BREAKFAST
     Route: 048
     Dates: start: 20201211
  14. DAIKENCHUTO [Concomitant]
     Active Substance: HERBALS
     Dosage: 1 DOSAGE FORM, TID BETWEEN EVERY MEAL
     Route: 050
     Dates: end: 20201210
  15. VEEN D [Concomitant]
     Active Substance: CALCIUM CHLORIDE\DEXTROSE\POTASSIUM CHLORIDE\SODIUM ACETATE\SODIUM CHLORIDE
     Dosage: 500 MILLILITER, QD
     Route: 050
     Dates: start: 20201209, end: 20201216
  16. BFLUID [Concomitant]
     Active Substance: AMINO ACIDS\DEXTROSE\ELECTROLYTES NOS\VITAMINS
     Dosage: 500 MILLILITER, QD
     Route: 050
     Dates: start: 20201210, end: 20201216
  17. DALACIN [CLINDAMYCIN HYDROCHLORIDE] [Concomitant]
     Active Substance: CLINDAMYCIN HYDROCHLORIDE
     Dosage: 600 MILLIGRAM, QID AFTER EVERY MEALS AND BEFORE BEDTIME
     Route: 050
     Dates: start: 20201208, end: 20201209
  18. DALACIN?S [Concomitant]
     Active Substance: CLINDAMYCIN
     Dosage: 1800 MILLIGRAM, TID
     Route: 050
     Dates: start: 20201209, end: 20201217

REACTIONS (5)
  - Anaemia [Unknown]
  - Pyrexia [Unknown]
  - Lung neoplasm malignant [Unknown]
  - Ileal ulcer [Recovering/Resolving]
  - Haematochezia [Recovered/Resolved]

NARRATIVE: CASE EVENT DATE: 20201208
